FAERS Safety Report 21294820 (Version 1)
Quarter: 2022Q3

REPORT INFORMATION
  Report Type: Report from Study
  Country: US (occurrence: US)
  Receive Date: 20220905
  Receipt Date: 20220905
  Transmission Date: 20221026
  Serious: Yes (Death, Hospitalization, Other)
  Sender: FDA-Public Use
  Company Number: US-TEVA-2022-US-2069186

PATIENT
  Age: 20 Year
  Sex: Male
  Weight: 82.8 kg

DRUGS (13)
  1. VINCRISTINE [Suspect]
     Active Substance: VINCRISTINE
     Indication: B precursor type acute leukaemia
     Dosage: 1.5 MG/M2, THE LAST DOSES OF PRIOR TO THE SAES WERE TAKEN ON 25JUL2022
     Route: 042
     Dates: start: 20220211
  2. METHOTREXATE [Suspect]
     Active Substance: METHOTREXATE
     Indication: B precursor type acute leukaemia
     Dosage: 15 MG ONCE, LAST DOSE OF IT METHOTREXATE PRIOR TO THE SAES WAS TAKEN ON 11JUL2022
     Route: 037
     Dates: start: 20220128
  3. METHOTREXATE [Suspect]
     Active Substance: METHOTREXATE
     Dosage: 5000 MG/M2, LAST DOSE OF HIGH-DOSE METHOTREXATE (IV) PRIOR TO THE SAES WAS TAKEN ON 14JUN2022
     Route: 042
     Dates: start: 20220419
  4. LEUCOVORIN [Suspect]
     Active Substance: LEUCOVORIN
     Indication: B precursor type acute leukaemia
     Dosage: 15 MG/M2, LAST DOSE OF LEUCOVORIN PRIOR TO THE SAES WAS TAKEN ON 16JUN2022
     Dates: start: 20220421
  5. DEXAMETHASONE [Suspect]
     Active Substance: DEXAMETHASONE
     Indication: B precursor type acute leukaemia
     Dosage: 5 MG/M2, THE LAST DOSES OF PRIOR TO THE SAES WERE TAKEN ON 25JUL2022
     Route: 048
     Dates: start: 20220708
  6. DOXORUBICIN [Suspect]
     Active Substance: DOXORUBICIN
     Indication: B precursor type acute leukaemia
     Route: 042
  7. PEGASPARGASE [Suspect]
     Active Substance: PEGASPARGASE
     Indication: B precursor type acute leukaemia
     Dosage: 2500 UNITS/M2 ONCE (TOTAL 4750 UNITS), LAST DOSE OF PEGASPARGASE PRIOR...
     Route: 042
     Dates: start: 20220211
  8. MERCAPTOPURINE [Suspect]
     Active Substance: MERCAPTOPURINE
     Indication: B precursor type acute leukaemia
     Dosage: 60 MG/M2, REDUCED TO 25 MG/M2/DOSE, LAST DOSE OF MERCAPTOPURINE PRIOR....
     Route: 048
     Dates: start: 20220128, end: 20220322
  9. MERCAPTOPURINE [Suspect]
     Active Substance: MERCAPTOPURINE
     Route: 048
     Dates: start: 20220419
  10. CYTARABINE [Suspect]
     Active Substance: CYTARABINE
     Indication: B precursor type acute leukaemia
     Dosage: 75 MG/KG, THE LAST DOSE OF CYTARABINE PRIOR TO THE SAES WAS TAKEN ON 19MAR2022
     Route: 042
     Dates: start: 20220128
  11. CYCLOPHOSPHAMIDE [Suspect]
     Active Substance: CYCLOPHOSPHAMIDE
     Indication: B precursor type acute leukaemia
     Dosage: 1000 MG/M2, THE LAST DOSE OF CYCLOPHOSPHAMIDE PRIOR TO THE...
     Route: 042
     Dates: start: 20220128
  12. RUXOLITINIB [Suspect]
     Active Substance: RUXOLITINIB
     Indication: B precursor type acute leukaemia
     Dosage: 100 MG/M2 DAILY; 50 MG/M2, LAST DOSE OF INCB018424 PRIOR TO THE SAES WAS TAKEN ON 24JUL2022
     Route: 048
     Dates: start: 20220128
  13. ONDANSETRON [Concomitant]
     Active Substance: ONDANSETRON
     Indication: Product used for unknown indication
     Dates: start: 20220128

REACTIONS (7)
  - Neutropenia [Fatal]
  - Shock [Fatal]
  - COVID-19 [Fatal]
  - Pancreatitis acute [Fatal]
  - Abdominal pain [Unknown]
  - Nausea [Unknown]
  - Vomiting [Unknown]

NARRATIVE: CASE EVENT DATE: 20220802
